FAERS Safety Report 9216841 (Version 4)
Quarter: 2013Q2

REPORT INFORMATION
  Report Type: Report from Study
  Country: SG (occurrence: SG)
  Receive Date: 20130408
  Receipt Date: 20130503
  Transmission Date: 20140414
  Serious: Yes (Hospitalization)
  Sender: FDA-Public Use
  Company Number: SG-PFIZER INC-2013092116

PATIENT
  Age: 8 Year
  Sex: Male
  Weight: 29.9 kg

DRUGS (12)
  1. VORICONAZOLE [Suspect]
     Indication: ASPERGILLUS INFECTION
     Dosage: 200 MG, 2X/DAY
     Route: 048
     Dates: start: 20130119
  2. CYTARABINE [Suspect]
     Indication: CHEMOTHERAPY
     Dosage: 2021 MG, 1X/DAY
     Route: 042
     Dates: start: 20130306, end: 20130308
  3. DAUNORUBICIN HCL [Suspect]
     Indication: CHEMOTHERAPY
     Dosage: 50 MG, ONCE DAILY
     Route: 042
     Dates: start: 20130307, end: 20130308
  4. FLUDARABINE [Suspect]
     Indication: CHEMOTHERAPY
     Dosage: 25 MG, ONCE DAILY
     Route: 042
     Dates: start: 20130306, end: 20130308
  5. MIDAZOLAM [Concomitant]
     Indication: ANAESTHESIA
     Dosage: 5 MG, ONCE
     Route: 042
     Dates: start: 20130306, end: 20130306
  6. ATROPINE [Concomitant]
     Indication: PREMEDICATION
     Dosage: 0.6 MG, ONCE
     Route: 042
     Dates: start: 20130306, end: 20130306
  7. KETAMINE [Concomitant]
     Indication: ANAESTHESIA
     Dosage: 60 MG, ONCE
     Route: 042
     Dates: start: 20130306, end: 20130306
  8. DIPHENHYDRAMINE HYDROCHLORIDE [Concomitant]
     Indication: PREMEDICATION
     Dosage: 25 MG, ONCE
     Route: 042
     Dates: start: 20130306, end: 20130306
  9. PARACETAMOL [Concomitant]
     Indication: PYREXIA
     Dosage: 360 MG, 6H
     Route: 048
     Dates: start: 20130308, end: 20130308
  10. CEFTRIAXONE [Concomitant]
     Indication: ANTIBIOTIC THERAPY
     Dosage: 1.5 G, 24H
     Route: 042
     Dates: start: 20130308, end: 20130310
  11. METHYLCELLULOSE [Concomitant]
     Indication: DRY EYE
     Dosage: 2 DROPS, 4H
     Route: 061
     Dates: start: 20130306, end: 20130310
  12. ONDANSETRON [Concomitant]
     Indication: PREMEDICATION
     Dosage: 6 MG, 6H
     Route: 042
     Dates: start: 20130306, end: 20130309

REACTIONS (1)
  - Febrile neutropenia [Recovered/Resolved]
